FAERS Safety Report 25196553 (Version 1)
Quarter: 2025Q2

REPORT INFORMATION
  Report Type: Spontaneous
  Country: FR (occurrence: FR)
  Receive Date: 20250415
  Receipt Date: 20250415
  Transmission Date: 20250717
  Serious: Yes (Hospitalization)
  Sender: TEVA
  Company Number: None

PATIENT
  Age: 57 Year
  Sex: Female
  Weight: 92 kg

DRUGS (3)
  1. DULOXETINE [Suspect]
     Active Substance: DULOXETINE
     Indication: Mixed anxiety and depressive disorder
     Dosage: DULOXETINE HYDROCHLORIDE
     Route: 048
     Dates: start: 202403
  2. GABAPENTIN [Suspect]
     Active Substance: GABAPENTIN
     Indication: Neuralgia
     Dosage: 500 MG - 500 MG - 600 MG
     Route: 048
     Dates: start: 20230201
  3. BETAHISTINE [Suspect]
     Active Substance: BETAHISTINE
     Indication: Vertigo
     Dosage: 24 MG 2 TIMES/DAY, BETAHISTINE HYDROCHLORIDE
     Route: 048

REACTIONS (1)
  - Pancreatitis acute [Recovered/Resolved]

NARRATIVE: CASE EVENT DATE: 20250315
